FAERS Safety Report 14278301 (Version 1)
Quarter: 2017Q4

REPORT INFORMATION
  Report Type: Spontaneous
  Country: GB (occurrence: GB)
  Receive Date: 20171211
  Receipt Date: 20171211
  Transmission Date: 20180321
  Serious: Yes (Hospitalization)
  Sender: FDA-Public Use
  Company Number: GB-OTSUKA-DJ20104166

PATIENT

DRUGS (10)
  1. DONEPEZIL. [Concomitant]
     Active Substance: DONEPEZIL
     Route: 065
     Dates: start: 201007
  2. ROPINIROLE. [Suspect]
     Active Substance: ROPINIROLE
     Route: 048
     Dates: start: 201007
  3. STALEVO [Concomitant]
     Active Substance: CARBIDOPA\ENTACAPONE\LEVODOPA
     Route: 065
  4. OMEPRAZOLE. [Concomitant]
     Active Substance: OMEPRAZOLE
     Route: 065
     Dates: start: 201007
  5. LEVODOPA [Concomitant]
     Active Substance: LEVODOPA
     Dosage: 1DF-1(UNITS NOT SPECIFIED)
     Route: 048
     Dates: start: 201007
  6. DONEPEZIL. [Concomitant]
     Active Substance: DONEPEZIL
     Dosage: AT MORNING
     Route: 048
     Dates: start: 201007
  7. ABILIFY [Suspect]
     Active Substance: ARIPIPRAZOLE
     Indication: HALLUCINATION
     Route: 048
  8. ABILIFY [Suspect]
     Active Substance: ARIPIPRAZOLE
     Indication: PARKINSON^S DISEASE
  9. CO-CARELDOPA [Concomitant]
     Active Substance: CARBIDOPA\LEVODOPA
     Route: 065
     Dates: start: 201007
  10. OMEPRAZOLE. [Concomitant]
     Active Substance: OMEPRAZOLE
     Dosage: 20 MG, QD
     Route: 048
     Dates: start: 201007

REACTIONS (3)
  - Dysphagia [Recovered/Resolved]
  - Asthenia [Unknown]
  - Dyspnoea [Recovered/Resolved]

NARRATIVE: CASE EVENT DATE: 20100625
